FAERS Safety Report 5529506-9 (Version None)
Quarter: 2007Q4

REPORT INFORMATION
  Report Type: 
  Country: None (occurrence: None)
  Receive Date: 20071129
  Receipt Date: 20071119
  Transmission Date: 20080405
  Serious: Yes (Hospitalization, Other)
  Sender: FDA-Public Use
  Company Number: US-ELI_LILLY_AND_COMPANY-US200709002739

PATIENT
  Sex: Female
  Weight: 96.145 kg

DRUGS (7)
  1. HUMALOG MIX 75/25 [Suspect]
     Indication: DIABETES MELLITUS
     Dosage: 7 U, OTHER
  2. NORVASC [Concomitant]
     Dosage: 10 MG, DAILY (1/D)
  3. HYZAAR [Concomitant]
     Dosage: UNK, DAILY (1/D)
  4. CRESTOR [Concomitant]
     Dosage: 10 MG, DAILY (1/D)
  5. AVANDAMET [Concomitant]
     Dosage: UNK, 2/D
  6. AMLODIPINE [Concomitant]
  7. MELOXICAM [Concomitant]

REACTIONS (8)
  - AMNESIA [None]
  - ARTHROPATHY [None]
  - CEREBROVASCULAR ACCIDENT [None]
  - HYPOGLYCAEMIA [None]
  - INCORRECT DOSE ADMINISTERED [None]
  - SPEECH DISORDER [None]
  - TRANSIENT ISCHAEMIC ATTACK [None]
  - WEIGHT INCREASED [None]
